FAERS Safety Report 13422491 (Version 1)
Quarter: 2017Q2

REPORT INFORMATION
  Report Type: Spontaneous
  Country: US (occurrence: US)
  Receive Date: 20170410
  Receipt Date: 20170410
  Transmission Date: 20170830
  Serious: Yes (Other)
  Sender: FDA-Public Use
  Company Number: None

PATIENT
  Age: 40 Year
  Sex: Female
  Weight: 85 kg

DRUGS (2)
  1. PHENTERMINE. [Suspect]
     Active Substance: PHENTERMINE
     Indication: WEIGHT DECREASED
     Dosage: ?          QUANTITY:28 TABLET(S);?
     Route: 048
     Dates: start: 20170408, end: 20170410
  2. FOLIC ACID. [Concomitant]
     Active Substance: FOLIC ACID

REACTIONS (7)
  - Chest discomfort [None]
  - Dry throat [None]
  - Pollakiuria [None]
  - Headache [None]
  - Gastric disorder [None]
  - Vaginal haemorrhage [None]
  - Palpitations [None]

NARRATIVE: CASE EVENT DATE: 20170410
